FAERS Safety Report 22117018 (Version 1)
Quarter: 2023Q1

REPORT INFORMATION
  Report Type: Spontaneous
  Country: US (occurrence: US)
  Receive Date: 20230320
  Receipt Date: 20230320
  Transmission Date: 20230417
  Serious: No
  Sender: FDA-Public Use
  Company Number: US-GE HEALTHCARE-2023CSU000533

PATIENT
  Age: 76 Year
  Sex: Female

DRUGS (4)
  1. CERIANNA [Suspect]
     Active Substance: FLUOROESTRADIOL F-18
     Indication: Positron emission tomogram
     Dosage: UNK UNK, SINGLE
     Route: 042
     Dates: start: 20220805, end: 20220805
  2. CERIANNA [Suspect]
     Active Substance: FLUOROESTRADIOL F-18
     Indication: Breast cancer female
  3. VERZENIO [Concomitant]
     Active Substance: ABEMACICLIB
     Indication: Neoadjuvant therapy
     Dosage: UNK
     Route: 065
     Dates: start: 20220701
  4. LETROZOLE [Concomitant]
     Active Substance: LETROZOLE
     Indication: Neoadjuvant therapy
     Dosage: UNK
     Route: 065
     Dates: start: 20220701

REACTIONS (2)
  - False negative investigation result [Unknown]
  - No adverse event [Recovered/Resolved]

NARRATIVE: CASE EVENT DATE: 20220805
